FAERS Safety Report 8302493-6 (Version None)
Quarter: 2012Q2

REPORT INFORMATION
  Report Type: 
  Country: None (occurrence: None)
  Receive Date: 20120402
  Receipt Date: 20120322
  Transmission Date: 20120825
  Serious: Yes (Other)
  Sender: FDA-Public Use
  Company Number: 2012031739

PATIENT
  Age: 69 Year
  Sex: Female

DRUGS (7)
  1. MORPHINE [Concomitant]
  2. PRIVIGEN [Suspect]
     Indication: GUILLAIN-BARRE SYNDROME
  3. SENNOSIDE (SENNOSIDE A+B CALCIUM) [Concomitant]
  4. COLACE (DOCUSATE SODIUM) [Concomitant]
  5. HYDROCORTISONE [Concomitant]
  6. PRIVIGEN [Suspect]
     Indication: GUILLAIN-BARRE SYNDROME
     Dosage: 20 G QD, RATE STARTED AT 60 ENDED BETWEEN 150-180 ML/HR, INTRAVENOUS (NOT OTHERWISE SPECIFIED)
     Dates: start: 20120217, end: 20120222
  7. NORVASC [Concomitant]

REACTIONS (4)
  - HAEMOLYSIS [None]
  - HAEMOGLOBIN DECREASED [None]
  - HYPERTENSION [None]
  - OFF LABEL USE [None]
